FAERS Safety Report 8799378 (Version 2)
Quarter: 2012Q4

REPORT INFORMATION
  Report Type: Report from Study
  Country: US (occurrence: US)
  Receive Date: 20120920
  Receipt Date: 20121123
  Transmission Date: 20130627
  Serious: Yes (Hospitalization, Other)
  Sender: FDA-Public Use
  Company Number: US-ABBOTT-12P-163-0971498-00

PATIENT
  Age: 75 Year
  Sex: Female

DRUGS (19)
  1. HUMIRA [Suspect]
     Indication: CROHN^S DISEASE
     Dates: start: 20120612
  2. HUMIRA [Suspect]
     Dates: start: 20121107, end: 20121107
  3. HUMIRA [Suspect]
     Dates: start: 20121114, end: 20121114
  4. HUMIRA [Suspect]
     Dates: start: 201211
  5. UNKNOWN BLOOD PRESSURE MEDICATION [Concomitant]
     Indication: PRODUCT USED FOR UNKNOWN INDICATION
  6. UNKNOWN CROHN^S MEDICATION [Concomitant]
     Indication: PRODUCT USED FOR UNKNOWN INDICATION
  7. COUMADIN [Concomitant]
     Indication: THROMBOSIS
  8. HYOSCYAMINE SULFATE [Concomitant]
     Indication: IRRITABLE BOWEL SYNDROME
     Dosage: 2 daily
  9. GLIPIZIDE [Concomitant]
     Indication: DIABETES MELLITUS
     Dosage: 2 daily
  10. JANUVIA [Concomitant]
     Indication: DIABETES MELLITUS
     Dosage: 1 daily
  11. ATENOLOL [Concomitant]
     Indication: HYPERTENSION
     Dosage: 1 daily
  12. LISINOPRIL [Concomitant]
     Indication: HYPERTENSION
     Dosage: 1 daily
  13. FOLIC ACID [Concomitant]
     Indication: VITAMIN SUPPLEMENTATION
     Dosage: 1 daily
  14. CLARITIN [Concomitant]
     Indication: HYPERSENSITIVITY
     Dosage: 1 daily
  15. PLETAL [Concomitant]
     Indication: THROMBOSIS
     Dosage: 2 daily
  16. LUNESTA [Concomitant]
     Indication: INSOMNIA
     Dosage: 1 daily
  17. HYDROCODONE [Concomitant]
     Indication: PAIN
     Dosage: 3 daily
  18. POTASSIUM [Concomitant]
     Indication: PRODUCT USED FOR UNKNOWN INDICATION
     Dosage: 20 mEq twice a day
  19. IRON [Concomitant]
     Indication: PRODUCT USED FOR UNKNOWN INDICATION
     Dosage: 50,000 units orally once a week for 8 weeks

REACTIONS (8)
  - Intestinal perforation [Recovering/Resolving]
  - Muscle spasms [Recovering/Resolving]
  - Dyspnoea [Recovering/Resolving]
  - Loss of consciousness [Recovering/Resolving]
  - Blood potassium decreased [Recovering/Resolving]
  - Urinary tract infection [Recovering/Resolving]
  - Impaired healing [Recovering/Resolving]
  - Gastrointestinal infection [Unknown]
